FAERS Safety Report 5823817-5 (Version None)
Quarter: 2008Q3

REPORT INFORMATION
  Report Type: 
  Country: None (occurrence: None)
  Receive Date: 20080725
  Receipt Date: 20080722
  Transmission Date: 20090109
  Serious: Yes (Hospitalization)
  Sender: FDA-Public Use
  Company Number: US-AMGEN-US248811

PATIENT
  Sex: Male
  Weight: 86.3 kg

DRUGS (17)
  1. PANITUMUMAB [Suspect]
     Indication: SQUAMOUS CELL CARCINOMA
     Route: 042
     Dates: start: 20071010
  2. DOCETAXEL [Suspect]
     Route: 065
  3. CISPLATIN [Suspect]
     Route: 065
  4. NEULASTA [Concomitant]
     Route: 065
     Dates: start: 20071012
  5. ASPIRIN [Concomitant]
  6. HYTRIN [Concomitant]
     Route: 048
  7. POTASSIUM CHLORIDE [Concomitant]
  8. LESCOL [Concomitant]
  9. NASONEX [Concomitant]
  10. NYSTATIN [Concomitant]
  11. PRILOSEC [Concomitant]
  12. RESTORIL [Concomitant]
  13. SYNTHROID [Concomitant]
  14. AMBIEN [Concomitant]
  15. GUAIFENESIN [Concomitant]
  16. PROTONIX [Concomitant]
  17. DECADRON [Concomitant]

REACTIONS (3)
  - DEHYDRATION [None]
  - DIARRHOEA [None]
  - NEUTROPENIA [None]
